FAERS Safety Report 19777951 (Version 1)
Quarter: 2021Q3

REPORT INFORMATION
  Report Type: Spontaneous
  Country: GB (occurrence: GB)
  Receive Date: 20210901
  Receipt Date: 20210901
  Transmission Date: 20211014
  Serious: Yes (Disabling)
  Sender: FDA-Public Use
  Company Number: None

PATIENT
  Sex: Female

DRUGS (2)
  1. ELOCON [Suspect]
     Active Substance: MOMETASONE FUROATE
     Indication: PRODUCT USED FOR UNKNOWN INDICATION
     Route: 061
  2. DERMOVATE CLOBETASOL [Suspect]
     Active Substance: CLOBETASOL PROPIONATE
     Route: 061

REACTIONS (4)
  - Rash erythematous [None]
  - Eczema [None]
  - Insomnia [None]
  - Skin injury [None]

NARRATIVE: CASE EVENT DATE: 20150401
